FAERS Safety Report 18953038 (Version 1)
Quarter: 2021Q1

REPORT INFORMATION
  Report Type: Report from Study
  Country: US (occurrence: US)
  Receive Date: 20210301
  Receipt Date: 20210301
  Transmission Date: 20210420
  Serious: Yes (Hospitalization)
  Sender: FDA-Public Use
  Company Number: US-BAUSCH-BL-2021-006929

PATIENT
  Age: 48 Year
  Sex: Male

DRUGS (2)
  1. XIFAXAN [Suspect]
     Active Substance: RIFAXIMIN
     Dosage: SAMPLE FROM PHYSICIAN
     Route: 065
  2. XIFAXAN [Suspect]
     Active Substance: RIFAXIMIN
     Indication: HEPATIC ENCEPHALOPATHY
     Dosage: STOPPED DUE TO COST
     Route: 065

REACTIONS (5)
  - Hospitalisation [Unknown]
  - Upper limb fracture [Unknown]
  - Therapy interrupted [Unknown]
  - Fall [Unknown]
  - Inability to afford medication [Unknown]
